FAERS Safety Report 4567758-2 (Version None)
Quarter: 2005Q1

REPORT INFORMATION
  Report Type: 
  Country: None (occurrence: None)
  Receive Date: 20050125
  Receipt Date: 20050125
  Transmission Date: 20050727
  Serious: No
  Sender: FDA-Public Use
  Company Number: None

PATIENT
  Age: 40 Year
  Sex: Male
  Weight: 92.5338 kg

DRUGS (3)
  1. TOPROL-XL [Suspect]
     Indication: HEART RATE INCREASED
     Dosage: 50MG DAILY ORALLY
     Route: 048
     Dates: start: 20041213, end: 20050107
  2. TOPROL-XL [Suspect]
     Indication: HYPERTENSION
     Dosage: 50MG DAILY ORALLY
     Route: 048
     Dates: start: 20041213, end: 20050107
  3. LISINOPRIL [Concomitant]

REACTIONS (1)
  - ERECTILE DYSFUNCTION [None]
